FAERS Safety Report 17723839 (Version 14)
Quarter: 2022Q2

REPORT INFORMATION
  Report Type: Other
  Country: DE (occurrence: None)
  Receive Date: 20200429
  Receipt Date: 20220517
  Transmission Date: 20220720
  Serious: Yes (Other)
  Sender: FDA-Public Use
  Company Number: DE-ROCHE-2478421

PATIENT
  Age: 46 Year
  Sex: Female

DRUGS (9)
  1. OCREVUS [Suspect]
     Active Substance: OCRELIZUMAB
     Indication: Relapsing-remitting multiple sclerosis
     Route: 042
     Dates: start: 20191008
  2. OCREVUS [Suspect]
     Active Substance: OCRELIZUMAB
     Route: 042
     Dates: start: 20191022
  3. OCREVUS [Suspect]
     Active Substance: OCRELIZUMAB
     Route: 042
  4. OCREVUS [Suspect]
     Active Substance: OCRELIZUMAB
     Route: 042
     Dates: start: 20201015
  5. OCREVUS [Suspect]
     Active Substance: OCRELIZUMAB
     Route: 042
     Dates: start: 20210415
  6. OCREVUS [Suspect]
     Active Substance: OCRELIZUMAB
     Route: 042
  7. COMIRNATY [Suspect]
     Active Substance: TOZINAMERAN
     Indication: Product used for unknown indication
     Dosage: 2ND VACCINATION
     Route: 065
     Dates: start: 20210816
  8. LOSARTAN [Concomitant]
     Active Substance: LOSARTAN
     Dosage: TOGETHER WITH  HYDROCHLOROTHIAZIDE
  9. HYDROCHLOROTHIAZIDE [Concomitant]
     Active Substance: HYDROCHLOROTHIAZIDE
     Dosage: TOGETHER WITH LOSARTAN

REACTIONS (25)
  - Neutrophil count increased [Not Recovered/Not Resolved]
  - Oral herpes [Recovered/Resolved]
  - Lymphocyte count decreased [Not Recovered/Not Resolved]
  - Vitamin D deficiency [Recovered/Resolved]
  - Product administration error [Unknown]
  - Alopecia [Not Recovered/Not Resolved]
  - Fatigue [Recovered/Resolved]
  - Rales [Recovered/Resolved]
  - Burning sensation [Recovered/Resolved]
  - Blood immunoglobulin G decreased [Not Recovered/Not Resolved]
  - Breast cancer [Recovered/Resolved]
  - Affect lability [Recovered/Resolved]
  - Anxiety [Recovered/Resolved]
  - Procedural pain [Recovered/Resolved]
  - SARS-CoV-2 antibody test negative [Not Recovered/Not Resolved]
  - Pyrexia [Unknown]
  - Chills [Unknown]
  - Headache [Unknown]
  - Pain in extremity [Unknown]
  - Exostosis [Unknown]
  - Cough [Unknown]
  - Nasal congestion [Unknown]
  - C-reactive protein increased [Unknown]
  - Dehydroepiandrosterone increased [Unknown]
  - Blood immunoglobulin M decreased [Not Recovered/Not Resolved]

NARRATIVE: CASE EVENT DATE: 20191113
